FAERS Safety Report 18532512 (Version 1)
Quarter: 2020Q4

REPORT INFORMATION
  Report Type: Spontaneous
  Country: US (occurrence: US)
  Receive Date: 20201123
  Receipt Date: 20201123
  Transmission Date: 20210114
  Serious: No
  Sender: FDA-Public Use
  Company Number: US-ALXN-A202016920

PATIENT
  Age: 34 Year
  Sex: Female

DRUGS (1)
  1. SOLIRIS [Suspect]
     Active Substance: ECULIZUMAB
     Indication: MYASTHENIA GRAVIS
     Dosage: UNK
     Route: 065
     Dates: start: 20201020

REACTIONS (4)
  - Drug ineffective [Unknown]
  - Nausea [Unknown]
  - Arthralgia [Unknown]
  - Nasal congestion [Unknown]

NARRATIVE: CASE EVENT DATE: 2020
